FAERS Safety Report 5371903-9 (Version None)
Quarter: 2007Q2

REPORT INFORMATION
  Report Type: 
  Country: None (occurrence: None)
  Receive Date: 20070627
  Receipt Date: 20070618
  Transmission Date: 20071010
  Serious: Yes (Death)
  Sender: FDA-Public Use
  Company Number: JP-BRISTOL-MYERS SQUIBB COMPANY-13826722

PATIENT
  Sex: Female

DRUGS (3)
  1. ARIPIPRAZOLE [Suspect]
     Dosage: 12MG/18MG
     Route: 048
  2. HALOPERIDOL INTENSOL [Concomitant]
  3. PEROSPIRONE [Concomitant]
     Route: 048

REACTIONS (1)
  - SUDDEN DEATH [None]
